FAERS Safety Report 15073526 (Version 14)
Quarter: 2022Q1

REPORT INFORMATION
  Report Type: Spontaneous
  Country: US (occurrence: US)
  Receive Date: 20180627
  Receipt Date: 20220217
  Transmission Date: 20220423
  Serious: Yes (Other)
  Sender: FDA-Public Use
  Company Number: US-PFIZER INC-2018258251

PATIENT
  Age: 60 Year
  Sex: Female
  Weight: 118 kg

DRUGS (14)
  1. XELJANZ XR [Suspect]
     Active Substance: TOFACITINIB CITRATE
     Indication: Rheumatoid arthritis
     Dosage: 11 MG, 1X/DAY
     Route: 048
     Dates: start: 201804, end: 20181108
  2. XELJANZ XR [Suspect]
     Active Substance: TOFACITINIB CITRATE
     Dosage: 11 MG, 1X/DAY
     Dates: start: 2018
  3. XELJANZ XR [Suspect]
     Active Substance: TOFACITINIB CITRATE
     Dosage: 11 MG, 1X/DAY
     Route: 048
     Dates: start: 202009
  4. XELJANZ XR [Suspect]
     Active Substance: TOFACITINIB CITRATE
     Dosage: 11 MG, DAILY
     Route: 048
     Dates: start: 202011
  5. XELJANZ XR [Suspect]
     Active Substance: TOFACITINIB CITRATE
     Dosage: 11 MG, DAILY
     Route: 048
     Dates: start: 202103, end: 20210616
  6. XELJANZ XR [Suspect]
     Active Substance: TOFACITINIB CITRATE
     Dosage: 11 MG, 1X/DAY
     Route: 048
     Dates: start: 20210706
  7. IBUPROFEN [Concomitant]
     Active Substance: IBUPROFEN
     Indication: Pain
     Dosage: 1600 MG, FOUR TIMES A DAY (QID) (8 TABLETS PER DAY TOTAL)
     Route: 048
     Dates: start: 1995
  8. PREDNISONE [Concomitant]
     Active Substance: PREDNISONE
     Indication: Rheumatoid arthritis
     Dosage: 7.5 MG PER DAY
  9. PREDNISONE [Concomitant]
     Active Substance: PREDNISONE
     Dosage: 5 MG, 1X/DAY
  10. METFORMIN HYDROCHLORIDE [Concomitant]
     Active Substance: METFORMIN HYDROCHLORIDE
     Dosage: 500 MG, 2X/DAY
     Dates: start: 2019
  11. GLIMEPIRIDE [Concomitant]
     Active Substance: GLIMEPIRIDE
     Dosage: 1 MG, 1X/DAY
     Dates: start: 2019
  12. NALTREXONE [Concomitant]
     Active Substance: NALTREXONE
     Indication: Rheumatoid arthritis
     Dosage: UNK, 1X/DAY
     Dates: start: 2017
  13. PENTOXIFYLLINE [Concomitant]
     Active Substance: PENTOXIFYLLINE
     Dosage: 400 MG, 1X/DAY
  14. NP THYROID [Concomitant]
     Active Substance: LEVOTHYROXINE\LIOTHYRONINE
     Dosage: 60 MG, 1X/DAY
     Dates: start: 2009

REACTIONS (18)
  - Nephrolithiasis [Unknown]
  - Vein rupture [Unknown]
  - Cyst [Unknown]
  - Therapeutic product effect incomplete [Unknown]
  - Abdominal pain [Recovered/Resolved]
  - Acne [Not Recovered/Not Resolved]
  - Bronchitis [Recovered/Resolved]
  - Condition aggravated [Unknown]
  - Skin ulcer [Recovered/Resolved]
  - Grip strength decreased [Unknown]
  - Depressed mood [Unknown]
  - Ageusia [Unknown]
  - Anosmia [Unknown]
  - Nasal congestion [Not Recovered/Not Resolved]
  - Pulmonary pain [Not Recovered/Not Resolved]
  - Pyrexia [Recovered/Resolved]
  - Exposure to SARS-CoV-2 [Unknown]
  - Anxiety [Unknown]

NARRATIVE: CASE EVENT DATE: 20180101
